FAERS Safety Report 24529460 (Version 1)
Quarter: 2024Q4

REPORT INFORMATION
  Report Type: Spontaneous
  Country: FR (occurrence: FR)
  Receive Date: 20241021
  Receipt Date: 20241021
  Transmission Date: 20250114
  Serious: Yes (Death)
  Sender: FRESENIUS KABI
  Company Number: None

PATIENT
  Sex: Male
  Weight: 2.98 kg

DRUGS (5)
  1. LIDOCAINE [Suspect]
     Active Substance: LIDOCAINE
     Indication: Local anaesthesia
     Dosage: 3 TP 7 ML T
     Route: 064
     Dates: start: 20221213, end: 20221213
  2. ROPIVACAINE HYDROCHLORIDE [Suspect]
     Active Substance: ROPIVACAINE HYDROCHLORIDE
     Indication: Spinal anaesthesia
     Route: 064
     Dates: start: 20221213, end: 20221213
  3. XYLOCAINE [Suspect]
     Active Substance: LIDOCAINE HYDROCHLORIDE
     Indication: Local anaesthesia
     Route: 064
     Dates: start: 20221213, end: 20221213
  4. SUFENTANIL [Suspect]
     Active Substance: SUFENTANIL
     Indication: Spinal anaesthesia
     Route: 064
     Dates: start: 20221213, end: 20221213
  5. REPEVAX [Suspect]
     Active Substance: DIPHTHERIA AND TETANUS TOXOIDS AND ACELLULAR PERTUSSIS ADSORBED AND INACTIVATED POLIOVIRUS VACCINE
     Indication: Immunisation
     Route: 064
     Dates: start: 20221025

REACTIONS (2)
  - Foetal death [Fatal]
  - Exposure during pregnancy [Fatal]

NARRATIVE: CASE EVENT DATE: 20221213
